FAERS Safety Report 7531252-7 (Version None)
Quarter: 2011Q2

REPORT INFORMATION
  Report Type: 
  Country: None (occurrence: None)
  Receive Date: 20110608
  Receipt Date: 20110525
  Transmission Date: 20111010
  Serious: Yes (Hospitalization)
  Sender: FDA-Public Use
  Company Number: US-JNJFOC-20110512798

PATIENT
  Sex: Male
  Weight: 106 kg

DRUGS (4)
  1. INFLIXIMAB, RECOMBINANT [Suspect]
     Indication: CROHN'S DISEASE
     Route: 042
     Dates: start: 20030317, end: 20100614
  2. ANTIHISTAMINES [Concomitant]
  3. MESALAMINE [Concomitant]
  4. CORTICOSTEROIDS [Concomitant]

REACTIONS (1)
  - PROSTATE CANCER [None]
